FAERS Safety Report 18392826 (Version 2)
Quarter: 2020Q4

REPORT INFORMATION
  Report Type: Spontaneous
  Country: GB (occurrence: GB)
  Receive Date: 20201016
  Receipt Date: 20201118
  Transmission Date: 20210114
  Serious: Yes (Other)
  Sender: FDA-Public Use
  Company Number: GB-TAKEDA-2020TUS042963

PATIENT
  Age: 48 Year
  Sex: Male

DRUGS (8)
  1. DARATUMUMAB [Concomitant]
     Active Substance: DARATUMUMAB
     Dosage: 16 MILLIGRAM/KILOGRAM, 2/WEEK
     Route: 065
  2. VELCADE [Suspect]
     Active Substance: BORTEZOMIB
     Indication: COLD TYPE HAEMOLYTIC ANAEMIA
     Dosage: UNK
     Route: 065
  3. DARATUMUMAB [Concomitant]
     Active Substance: DARATUMUMAB
     Indication: COLD TYPE HAEMOLYTIC ANAEMIA
     Dosage: 16 MILLIGRAM/KILOGRAM, 1/WEEK
     Route: 065
  4. DEXAMETHASONE. [Concomitant]
     Active Substance: DEXAMETHASONE
     Indication: COLD TYPE HAEMOLYTIC ANAEMIA
     Dosage: UNK
     Route: 065
  5. CYCLOPHOSPHAMIDE. [Suspect]
     Active Substance: CYCLOPHOSPHAMIDE
     Indication: COLD TYPE HAEMOLYTIC ANAEMIA
     Dosage: UNK
     Route: 065
  6. PREDNISOLONE. [Suspect]
     Active Substance: PREDNISOLONE
     Indication: COLD TYPE HAEMOLYTIC ANAEMIA
     Dosage: UNK
     Route: 065
  7. LENALIDOMIDE [Concomitant]
     Active Substance: LENALIDOMIDE
     Indication: COLD TYPE HAEMOLYTIC ANAEMIA
     Dosage: UNK
     Route: 065
  8. DARATUMUMAB [Concomitant]
     Active Substance: DARATUMUMAB
     Dosage: 16 MILLIGRAM/KILOGRAM, 4/WEEK
     Route: 065

REACTIONS (5)
  - Product use in unapproved indication [Unknown]
  - Therapeutic response decreased [Unknown]
  - Cold type haemolytic anaemia [Recovering/Resolving]
  - Neuropathy peripheral [Unknown]
  - Off label use [Unknown]
